FAERS Safety Report 8438265 (Version 3)
Quarter: 2012Q4

REPORT INFORMATION
  Report Type: 
  Country: FR (occurrence: FR)
  Receive Date: 20120302
  Receipt Date: 20121127
  Transmission Date: 20130627
  Serious: Yes (Death)
  Sender: FDA-Public Use
  Company Number: FR-GLAXOSMITHKLINE-B0784327A

PATIENT
  Age: 33 None
  Sex: Female
  Weight: 60 kg

DRUGS (10)
  1. LAMICTAL [Suspect]
     Indication: EPILEPSY
     Route: 048
     Dates: start: 20110901, end: 20121106
  2. TARDYFERON B9 [Concomitant]
     Indication: ANAEMIA
     Dosage: 1UNIT Per day
     Route: 048
     Dates: start: 20120103, end: 20120629
  3. SPECIAFOLDINE [Concomitant]
     Indication: PROPHYLAXIS
     Dosage: 5MG Per day
     Route: 048
     Dates: start: 20110607, end: 20120626
  4. URBANYL [Concomitant]
     Indication: EPILEPSY
     Dosage: 5MG Per day
     Route: 048
     Dates: start: 20120127
  5. GAVISCON [Concomitant]
     Indication: GASTROOESOPHAGEAL REFLUX DISEASE
     Route: 048
     Dates: start: 20120516, end: 20120620
  6. LANSOPRAZOLE [Concomitant]
     Indication: GASTROOESOPHAGEAL REFLUX DISEASE
     Dosage: 15MG Per day
     Route: 048
     Dates: start: 20120430, end: 20120611
  7. MAGNE B6 [Concomitant]
     Indication: MUSCLE SPASMS
     Dosage: 940MG Per day
     Route: 048
     Dates: start: 20120401, end: 20120629
  8. RIVOTRIL [Concomitant]
     Indication: EPILEPSY
     Route: 048
     Dates: end: 20111212
  9. ELEVIT [Concomitant]
     Indication: VITAMIN SUPPLEMENTATION
     Route: 048
     Dates: start: 20111210, end: 20120323
  10. SERESTA [Concomitant]
     Indication: EPILEPSY
     Dosage: 50MG Per day
     Route: 048
     Dates: start: 20120111, end: 20120111

REACTIONS (6)
  - Asphyxia [Fatal]
  - Fall [Fatal]
  - Exposure during pregnancy [Unknown]
  - Live birth [Unknown]
  - Epilepsy [Fatal]
  - Coma [Recovered/Resolved]
